FAERS Safety Report 9620832 (Version 2)
Quarter: 2013Q4

REPORT INFORMATION
  Report Type: Spontaneous
  Country: AR (occurrence: AR)
  Receive Date: 20131015
  Receipt Date: 20131022
  Transmission Date: 20140711
  Serious: Yes (Other)
  Sender: FDA-Public Use
  Company Number: AR-ACCORD-019900

PATIENT
  Age: 4 Year
  Sex: Male

DRUGS (2)
  1. TACROLIMUS [Suspect]
     Indication: IMMUNOSUPPRESSION
  2. MEPREDNISONE [Concomitant]
     Indication: IMMUNOSUPPRESSION

REACTIONS (2)
  - Kaposi^s sarcoma [Recovering/Resolving]
  - Human herpesvirus 8 infection [Recovering/Resolving]
